FAERS Safety Report 8477061 (Version 5)
Quarter: 2012Q4

REPORT INFORMATION
  Report Type: 
  Country: US (occurrence: US)
  Receive Date: 20120326
  Receipt Date: 20121220
  Transmission Date: 20130627
  Serious: Yes (Other)
  Sender: FDA-Public Use
  Company Number: US-PFIZER INC-2012073140

PATIENT
  Sex: Female

DRUGS (4)
  1. LYRICA [Suspect]
     Dosage: UNK
  2. LYRICA [Suspect]
     Dosage: UNK
  3. NEURONTIN [Suspect]
     Dosage: UNK
  4. GABAPENTIN [Suspect]
     Dosage: UNK

REACTIONS (7)
  - Suicidal ideation [Unknown]
  - Hypoaesthesia [Unknown]
  - Sensation of heaviness [Unknown]
  - Anger [Unknown]
  - Aggression [Unknown]
  - Abnormal behaviour [Unknown]
  - Musculoskeletal pain [Unknown]
